FAERS Safety Report 25968162 (Version 1)
Quarter: 2025Q4

REPORT INFORMATION
  Report Type: Spontaneous
  Country: ET (occurrence: ET)
  Receive Date: 20251028
  Receipt Date: 20251028
  Transmission Date: 20260117
  Serious: Yes (Hospitalization, Other)
  Sender: MACLEODS
  Company Number: ET-MLMSERVICE-20251010-PI672443-00201-1

PATIENT

DRUGS (1)
  1. LIDOCAINE [Suspect]
     Active Substance: LIDOCAINE
     Indication: Spinal anaesthesia
     Route: 065

REACTIONS (2)
  - Subdural haematoma [Recovered/Resolved]
  - Maternal exposure during delivery [Unknown]
